FAERS Safety Report 14617625 (Version 3)
Quarter: 2018Q4

REPORT INFORMATION
  Report Type: Report from Study
  Country: DE (occurrence: DE)
  Receive Date: 20180309
  Receipt Date: 20181128
  Transmission Date: 20190204
  Serious: Yes (Hospitalization, Other)
  Sender: FDA-Public Use
  Company Number: DE-JNJFOC-20180217411

PATIENT
  Age: 53 Year
  Sex: Male
  Weight: 74 kg

DRUGS (11)
  1. VENETOCLAX. [Suspect]
     Active Substance: VENETOCLAX
     Indication: CHRONIC LYMPHOCYTIC LEUKAEMIA
     Dosage: CYCLE 2, (4 TABLETS AT 100 MG, DAY 22-28, EVERY 28 DAYS)
     Route: 048
  2. SYMBICORT [Concomitant]
     Active Substance: BUDESONIDE\FORMOTEROL FUMARATE DIHYDRATE
     Dosage: ON DEMAND (2X)
     Route: 065
     Dates: start: 2012
  3. VENETOCLAX. [Suspect]
     Active Substance: VENETOCLAX
     Indication: CHRONIC LYMPHOCYTIC LEUKAEMIA
     Dosage: CYCLE 1, (2 TABLETS AT 10 MG), DAY 22-28 EVERY 28 DAYS
     Route: 048
  4. OBINUTUZUMAB. [Suspect]
     Active Substance: OBINUTUZUMAB
     Indication: CHRONIC LYMPHOCYTIC LEUKAEMIA
     Dosage: CYCLE 1, 100 MG DAY 1, 900 MG DAY 1 (2) [SIC],
     Route: 042
  5. VENETOCLAX. [Suspect]
     Active Substance: VENETOCLAX
     Indication: CHRONIC LYMPHOCYTIC LEUKAEMIA
     Dosage: CYCLE 3, (4 TABLETS AT 100 MG), DAY 1-28, EVERY 28 DAYS (400 MG, 1 IN 28 DAYS).
     Route: 048
     Dates: start: 20170928
  6. VENETOCLAX. [Suspect]
     Active Substance: VENETOCLAX
     Indication: CHRONIC LYMPHOCYTIC LEUKAEMIA
     Dosage: CYCLE 2, (1 TABLET AT 100 MG), DAY 8-14
     Route: 048
  7. VENETOCLAX. [Suspect]
     Active Substance: VENETOCLAX
     Indication: CHRONIC LYMPHOCYTIC LEUKAEMIA
     Dosage: CYCLE 2, (2 TABLETS AT 100 MG), DAY 15-21
     Route: 048
  8. IBRUTINIB [Suspect]
     Active Substance: IBRUTINIB
     Indication: CHRONIC LYMPHOCYTIC LEUKAEMIA
     Dosage: CYCLE 1-36 OF 420 MG EVERY 28 DAYS
     Route: 048
     Dates: start: 20170907, end: 20180208
  9. VENETOCLAX. [Suspect]
     Active Substance: VENETOCLAX
     Indication: CHRONIC LYMPHOCYTIC LEUKAEMIA
     Dosage: CYCLE 2, (1 TABLET AT 50 MG), DAY 1-7
     Route: 048
  10. IBRUTINIB [Suspect]
     Active Substance: IBRUTINIB
     Indication: CHRONIC LYMPHOCYTIC LEUKAEMIA
     Route: 048
     Dates: start: 20180222
  11. OBINUTUZUMAB. [Suspect]
     Active Substance: OBINUTUZUMAB
     Indication: CHRONIC LYMPHOCYTIC LEUKAEMIA
     Dosage: CYCLE 1, 1000 MG, DAY 8+15 FOR EVERY 28 DAYS
     Route: 042
     Dates: start: 20170907

REACTIONS (2)
  - Inflammation [Recovered/Resolved]
  - Accident [Recovered/Resolved]

NARRATIVE: CASE EVENT DATE: 20180129
